FAERS Safety Report 5463823-6 (Version None)
Quarter: 2007Q3

REPORT INFORMATION
  Report Type: 
  Country: None (occurrence: None)
  Receive Date: 20070919
  Receipt Date: 20070905
  Transmission Date: 20080115
  Serious: Yes (Hospitalization)
  Sender: FDA-Public Use
  Company Number: 2007S1008370

PATIENT
  Age: 56 Year
  Sex: Male
  Weight: 86.1834 kg

DRUGS (4)
  1. CIPROFLOXACIN [Suspect]
     Indication: ANTIBIOTIC PROPHYLAXIS
     Dosage: 500 MG; ONCE; ORAL
     Route: 048
     Dates: start: 20070810, end: 20070810
  2. ENDOCET (5 MG) [Suspect]
     Indication: PAIN PROPHYLAXIS
     Dosage: 10 MG; ONCE; ORAL
     Route: 048
     Dates: start: 20070810, end: 20070810
  3. DIAZEPAM [Suspect]
     Indication: SEDATIVE THERAPY
     Dosage: 5 MG; ONCE; ORAL
     Route: 048
     Dates: start: 20070810, end: 20070810
  4. VYTORIN [Concomitant]

REACTIONS (12)
  - ABNORMAL BEHAVIOUR [None]
  - ASTHENIA [None]
  - BALANCE DISORDER [None]
  - CARDIO-RESPIRATORY ARREST [None]
  - COLD SWEAT [None]
  - CONVULSION [None]
  - FATIGUE [None]
  - HEADACHE [None]
  - NAUSEA [None]
  - SINUS BRADYCARDIA [None]
  - SYNCOPE [None]
  - TRICUSPID VALVE INCOMPETENCE [None]
